FAERS Safety Report 8451925-1 (Version None)
Quarter: 2012Q2

REPORT INFORMATION
  Report Type: 
  Country: None (occurrence: None)
  Receive Date: 20120620
  Receipt Date: 20120324
  Transmission Date: 20120825
  Serious: No
  Sender: FDA-Public Use
  Company Number: US-VERTEX PHARMACEUTICALS INC.-AE-2012-004301

PATIENT
  Sex: Male
  Weight: 86.26 kg

DRUGS (5)
  1. IBUPROFEN [Concomitant]
     Indication: DISCOMFORT
     Route: 048
  2. INCIVEK [Suspect]
     Indication: HEPATITIS C
     Route: 048
     Dates: start: 20120323
  3. PEGASYS [Concomitant]
     Indication: HEPATITIS C
     Route: 058
     Dates: start: 20120323
  4. RIBAVIRIN [Concomitant]
     Indication: HEPATITIS C
     Route: 048
     Dates: start: 20120323
  5. ASPIRIN [Concomitant]
     Indication: SUPPLEMENTATION THERAPY
     Route: 048

REACTIONS (5)
  - PAIN [None]
  - INFLUENZA LIKE ILLNESS [None]
  - ANORECTAL DISCOMFORT [None]
  - HEADACHE [None]
  - VOMITING [None]
